FAERS Safety Report 6317467-4 (Version None)
Quarter: 2009Q3

REPORT INFORMATION
  Report Type: 
  Country: None (occurrence: None)
  Receive Date: 20090821
  Receipt Date: 20090813
  Transmission Date: 20100115
  Serious: Yes (Other)
  Sender: FDA-Public Use
  Company Number: BR-JNJFOC-20090804669

PATIENT
  Age: 53 Year
  Sex: Female
  Weight: 72 kg

DRUGS (6)
  1. HALDOL [Suspect]
     Indication: ABNORMAL BEHAVIOUR
     Route: 065
  2. CLONAZEPAM [Suspect]
     Indication: SEDATION
     Route: 065
  3. DIAZEPAM [Suspect]
     Dosage: 1 TABLET IN NIGHT
     Route: 065
  4. DIAZEPAM [Suspect]
     Indication: SEDATION
     Dosage: 1 TABLET IN AFTERNOON
     Route: 065
  5. ATENOLOL [Concomitant]
     Indication: HYPERTENSION
     Route: 065
  6. ACETAZOLAMIDE [Concomitant]
     Route: 065

REACTIONS (3)
  - BALANCE DISORDER [None]
  - LOSS OF CONTROL OF LEGS [None]
  - WEIGHT INCREASED [None]
